FAERS Safety Report 7867558-1 (Version None)
Quarter: 2011Q4

REPORT INFORMATION
  Report Type: 
  Country: None (occurrence: None)
  Receive Date: 20111028
  Receipt Date: 20111019
  Transmission Date: 20120403
  Serious: Yes (Other)
  Sender: FDA-Public Use
  Company Number: PHEH2010US03402

PATIENT
  Sex: Female

DRUGS (13)
  1. HYDROXYCHLOROQUINE SULFATE [Concomitant]
  2. CELEBREX [Concomitant]
  3. COUMADIN [Concomitant]
  4. SEROQUEL [Concomitant]
  5. LISINOPRIL [Concomitant]
  6. THALIDOMIDE [Concomitant]
  7. HYDROCHLOROTHIAZIDE [Concomitant]
  8. METHOTREXATE [Suspect]
  9. FOSAMAX [Suspect]
  10. PREDNISONE [Concomitant]
  11. ZOMETA [Suspect]
     Indication: MULTIPLE MYELOMA
     Dosage: 4 MG, MONTHLY
     Route: 042
     Dates: start: 20061129
  12. PERIDEX [Concomitant]
  13. PRIMIDONE [Concomitant]

REACTIONS (31)
  - OSTEONECROSIS OF JAW [None]
  - MACROCYTOSIS [None]
  - PULMONARY FIBROSIS [None]
  - INTERVERTEBRAL DISC DEGENERATION [None]
  - THROMBOSIS [None]
  - SCOLIOSIS [None]
  - EFFUSION [None]
  - ISCHAEMIC CARDIOMYOPATHY [None]
  - INJURY [None]
  - MONOCLONAL GAMMOPATHY [None]
  - NEUROPATHY PERIPHERAL [None]
  - DYSLIPIDAEMIA [None]
  - TOOTH LOSS [None]
  - RENAL FAILURE [None]
  - PAIN [None]
  - H1N1 INFLUENZA [None]
  - LEFT ATRIAL DILATATION [None]
  - ARTHRALGIA [None]
  - OSTEOPOROSIS [None]
  - ANHEDONIA [None]
  - BACK PAIN [None]
  - AORTIC ARTERIOSCLEROSIS [None]
  - CARDIAC FAILURE CONGESTIVE [None]
  - ANXIETY [None]
  - MITRAL VALVE INCOMPETENCE [None]
  - ATELECTASIS [None]
  - OSTEOARTHRITIS [None]
  - EXPOSED BONE IN JAW [None]
  - CONSTIPATION [None]
  - DYSPNOEA [None]
  - KYPHOSIS [None]
